FAERS Safety Report 15304644 (Version 1)
Quarter: 2018Q3

REPORT INFORMATION
  Report Type: Spontaneous
  Country: US (occurrence: US)
  Receive Date: 20180809
  Receipt Date: 20180809
  Transmission Date: 20181010
  Serious: Yes (Life-Threatening, Disabling)
  Sender: FDA-Public Use
  Company Number: None

PATIENT
  Age: 62 Year
  Sex: Female
  Weight: 63 kg

DRUGS (7)
  1. KLONOPIN [Concomitant]
     Active Substance: CLONAZEPAM
  2. PRAZOSIN. [Concomitant]
     Active Substance: PRAZOSIN
  3. VENLAFAXINE HCL [Suspect]
     Active Substance: VENLAFAXINE HYDROCHLORIDE
     Indication: OBSESSIVE-COMPULSIVE DISORDER
     Route: 048
     Dates: start: 19970131, end: 20120830
  4. EFFEXOR XR [Concomitant]
     Active Substance: VENLAFAXINE HYDROCHLORIDE
  5. LAMICTAL [Concomitant]
     Active Substance: LAMOTRIGINE
  6. ONE?A?DAY OVER 50 [Concomitant]
  7. CALCIUM CITRATE [Concomitant]
     Active Substance: CALCIUM CITRATE

REACTIONS (19)
  - Palpitations [None]
  - Personality change [None]
  - Emotional disorder [None]
  - Memory impairment [None]
  - Decreased interest [None]
  - Depressed mood [None]
  - Drug ineffective [None]
  - Brain injury [None]
  - Drug withdrawal syndrome [None]
  - Panic reaction [None]
  - Intentional self-injury [None]
  - Loss of employment [None]
  - Anxiety [None]
  - Social avoidant behaviour [None]
  - Flat affect [None]
  - Cognitive disorder [None]
  - Suicidal ideation [None]
  - Post-traumatic stress disorder [None]
  - Neck pain [None]

NARRATIVE: CASE EVENT DATE: 20120830
